FAERS Safety Report 13994775 (Version 1)
Quarter: 2017Q3

REPORT INFORMATION
  Report Type: Spontaneous
  Country: US (occurrence: None)
  Receive Date: 20170921
  Receipt Date: 20170921
  Transmission Date: 20171128
  Serious: Yes (Hospitalization)
  Sender: FDA-Public Use
  Company Number: None

PATIENT
  Age: 74 Year
  Sex: Male
  Weight: 94.2 kg

DRUGS (4)
  1. METHOTREXATE. [Suspect]
     Active Substance: METHOTREXATE
     Dates: end: 20170909
  2. MERCAPTOPURINE. [Suspect]
     Active Substance: MERCAPTOPURINE
     Dates: end: 20170914
  3. VINCRISTINE SULFATE. [Suspect]
     Active Substance: VINCRISTINE SULFATE
     Dates: end: 20170817
  4. PREDNISONE. [Suspect]
     Active Substance: PREDNISONE
     Dates: end: 20170821

REACTIONS (9)
  - Dyspnoea exertional [None]
  - Tongue ulceration [None]
  - Dizziness exertional [None]
  - Petechiae [None]
  - Fatigue [None]
  - Cytopenia [None]
  - Disease recurrence [None]
  - Stomatitis [None]
  - Hypophagia [None]

NARRATIVE: CASE EVENT DATE: 20170919
